FAERS Safety Report 9092597 (Version 1)
Quarter: 2013Q1

REPORT INFORMATION
  Report Type: Report from Study
  Country: DE (occurrence: DE)
  Receive Date: 20130201
  Receipt Date: 20130201
  Transmission Date: 20140127
  Serious: Yes (Death, Hospitalization)
  Sender: FDA-Public Use
  Company Number: DE-ABBOTT-13P-062-1043724-00

PATIENT
  Age: 71 Year
  Sex: Male

DRUGS (2)
  1. TRENANTONE [Suspect]
     Indication: PROSTATE CANCER
     Route: 058
     Dates: start: 20120201, end: 20120801
  2. ANTIANDROGENS [Concomitant]
     Indication: PROSTATE CANCER

REACTIONS (2)
  - Prostate cancer [Fatal]
  - Femoral neck fracture [Unknown]
